FAERS Safety Report 12155982 (Version 1)
Quarter: 2016Q1

REPORT INFORMATION
  Report Type: Spontaneous
  Country: US (occurrence: US)
  Receive Date: 20160307
  Receipt Date: 20160307
  Transmission Date: 20160526
  Serious: Yes (Other)
  Sender: FDA-Public Use
  Company Number: US-CORDEN PHARMA LATINA S.P.A.-US-2016COR000067

PATIENT
  Age: 73 Year
  Sex: Male

DRUGS (2)
  1. FLUOROURACIL. [Suspect]
     Active Substance: FLUOROURACIL
     Indication: OESOPHAGEAL CARCINOMA
     Dosage: UNK
  2. ETOPOSIDE. [Suspect]
     Active Substance: ETOPOSIDE
     Indication: OESOPHAGEAL CARCINOMA
     Dosage: UNK

REACTIONS (3)
  - Pancytopenia [Unknown]
  - Myelodysplastic syndrome [Unknown]
  - Cytogenetic abnormality [Unknown]
